FAERS Safety Report 6684158-X (Version None)
Quarter: 2010Q2

REPORT INFORMATION
  Report Type: 
  Country: None (occurrence: None)
  Receive Date: 20100416
  Receipt Date: 20100412
  Transmission Date: 20101027
  Serious: Yes (Hospitalization, Other)
  Sender: FDA-Public Use
  Company Number: BR-BAYER-200823304LA

PATIENT
  Age: 47 Year
  Sex: Female

DRUGS (18)
  1. BETAFERON [Suspect]
     Indication: RELAPSING-REMITTING MULTIPLE SCLEROSIS
     Dosage: TOTAL DAILY DOSE: 8 MIU
     Route: 058
     Dates: start: 20080617, end: 20081020
  2. BETAFERON [Suspect]
     Dosage: TOTAL DAILY DOSE: 8 MIU
     Route: 058
     Dates: start: 20081201, end: 20090901
  3. BETAFERON [Suspect]
     Dosage: TOTAL DAILY DOSE: 8 MIU
     Route: 058
     Dates: start: 20090907
  4. AMANTADINE HCL [Concomitant]
     Indication: FATIGUE
     Dosage: TOTAL DAILY DOSE: 300 MG  UNIT DOSE: 100 MG
     Route: 048
     Dates: start: 20080101
  5. PAROXETINE HCL [Concomitant]
     Indication: ANXIETY
     Dosage: TOTAL DAILY DOSE: 20 MG  UNIT DOSE: 20 MG
     Route: 048
  6. FLUNITRAZEPAM [Concomitant]
     Indication: INSOMNIA
     Dosage: TOTAL DAILY DOSE: 2 MG  UNIT DOSE: 1 MG
     Route: 048
  7. METHOTREXATE [Concomitant]
     Indication: ARTHRITIS
     Dosage: UNIT DOSE: 7.5 MG
     Route: 048
     Dates: start: 19980101
  8. SIRDALUD [Concomitant]
     Indication: RESTLESS LEGS SYNDROME
     Dosage: TOTAL DAILY DOSE: 4 MG  UNIT DOSE: 2 MG
     Route: 048
  9. OMEPRAZOLE [Concomitant]
     Indication: PROPHYLAXIS
     Dosage: TOTAL DAILY DOSE: 80 MG  UNIT DOSE: 40 MG
     Route: 048
  10. GALENIC FORMULATION [Concomitant]
     Indication: ARTHRITIS
     Route: 048
     Dates: start: 19980101, end: 20100301
  11. SINVASTACOR [Concomitant]
     Indication: HYPERCHOLESTEROLAEMIA
     Route: 065
     Dates: start: 20081001
  12. UNKNOWN DRUG [Concomitant]
     Indication: CARDIAC STRESS TEST
     Route: 065
     Dates: start: 20081001, end: 20081001
  13. UNKNOWN DRUG [Concomitant]
     Indication: ANTICOAGULANT THERAPY
     Route: 065
     Dates: start: 20081001, end: 20081001
  14. UNKNOWN DRUG [Concomitant]
     Indication: CARDIAC DISORDER
     Route: 065
  15. PANTOPRAZOLE [Concomitant]
     Indication: PROPHYLAXIS
     Dosage: AS USED: 1 DF
     Route: 048
     Dates: start: 20080101
  16. AAS [Concomitant]
     Indication: ANTIPLATELET THERAPY
     Dosage: AS USED: 1 DF
     Route: 048
     Dates: start: 20081001
  17. ALPRAZOLAM [Concomitant]
     Indication: ANXIETY
     Dosage: AS USED: 1 MG  UNIT DOSE: 1 MG
     Route: 048
     Dates: start: 20080101, end: 20100301
  18. ALPRAZOLAM [Concomitant]
     Dosage: 1/2 TAB IN THE MORNING, 1/2 TAB IN THE AFTERNOON AND 1 TAB AT NIGHT
     Route: 048
     Dates: start: 20100301

REACTIONS (19)
  - ABDOMINAL PAIN [None]
  - ARTHRALGIA [None]
  - BLOOD PRESSURE INCREASED [None]
  - CHEST PAIN [None]
  - DEPRESSED MOOD [None]
  - DIZZINESS [None]
  - EXOSTOSIS [None]
  - FATIGUE [None]
  - HYPOAESTHESIA [None]
  - INFLUENZA [None]
  - MOBILITY DECREASED [None]
  - MULTIPLE SCLEROSIS RELAPSE [None]
  - MYOCARDIAL INFARCTION [None]
  - NEUROPATHY PERIPHERAL [None]
  - OVERWEIGHT [None]
  - PAIN [None]
  - PANCREATIC DISORDER [None]
  - SILENT MYOCARDIAL INFARCTION [None]
  - SYNCOPE [None]
